FAERS Safety Report 4675844-1 (Version None)
Quarter: 2005Q2

REPORT INFORMATION
  Report Type: 
  Country: None (occurrence: None)
  Receive Date: 20050527
  Receipt Date: 20050519
  Transmission Date: 20051028
  Serious: Yes (Other)
  Sender: FDA-Public Use
  Company Number: GB-ABBOTT-05P-167-0300929-00

PATIENT
  Age: 20 Year
  Sex: Male

DRUGS (2)
  1. EPILIM CHRONO TABLETS [Suspect]
     Indication: EPILEPSY
     Route: 048
     Dates: start: 20050310
  2. METHADONE [Interacting]
     Indication: DEPENDENCE
     Route: 048

REACTIONS (2)
  - DRUG INTERACTION [None]
  - DRUG WITHDRAWAL SYNDROME [None]
